FAERS Safety Report 7968038-5 (Version None)
Quarter: 2011Q4

REPORT INFORMATION
  Report Type: 
  Country: None (occurrence: None)
  Receive Date: 20111209
  Receipt Date: 20111129
  Transmission Date: 20120403
  Serious: Yes (Life-Threatening, Hospitalization, Other)
  Sender: FDA-Public Use
  Company Number: US-ACTELION-A-NJ2011-52897

PATIENT

DRUGS (2)
  1. TRACLEER [Suspect]
     Indication: PULMONARY ARTERIAL HYPERTENSION
     Dosage: 2 MG/KG, BID
     Route: 048
     Dates: end: 20110101
  2. TRACLEER [Suspect]
     Dosage: 1 MG/KG, BID
     Route: 048

REACTIONS (4)
  - MECHANICAL VENTILATION [None]
  - LIVER FUNCTION TEST ABNORMAL [None]
  - PARAINFLUENZAE VIRUS INFECTION [None]
  - RESPIRATORY FAILURE [None]
